FAERS Safety Report 4444007-7 (Version None)
Quarter: 2004Q3

REPORT INFORMATION
  Report Type: 
  Country: None (occurrence: None)
  Receive Date: 20040729
  Receipt Date: 20031013
  Transmission Date: 20050211
  Serious: Yes (Hospitalization)
  Sender: FDA-Public Use
  Company Number: US-JNJFOC-20030906650

PATIENT
  Age: 27 Year
  Sex: Male

DRUGS (3)
  1. RISPERDAL [Suspect]
     Dosage: 2.5 MG, 1 IN 1 DAY, ORAL
     Route: 048
  2. LITHIUM CARBONATE [Suspect]
     Dosage: 1500 MG, 1 IN 1 DAY
  3. ESCITALOPRAM OXALATE [Suspect]
     Indication: BIPOLAR DISORDER
     Dosage: 10 MG, 1 IN 1 DAY

REACTIONS (2)
  - DEEP VEIN THROMBOSIS [None]
  - PULMONARY EMBOLISM [None]
